FAERS Safety Report 19076728 (Version 2)
Quarter: 2021Q2

REPORT INFORMATION
  Report Type: Spontaneous
  Country: US (occurrence: US)
  Receive Date: 20210331
  Receipt Date: 20210517
  Transmission Date: 20210717
  Serious: No
  Sender: FDA-Public Use
  Company Number: US-JNJFOC-20210348926

PATIENT
  Sex: Female

DRUGS (4)
  1. INVEGA [Suspect]
     Active Substance: PALIPERIDONE
     Indication: SCHIZOAFFECTIVE DISORDER
     Route: 048
  2. INVEGA SUSTENNA [Suspect]
     Active Substance: PALIPERIDONE PALMITATE
     Indication: SCHIZOAFFECTIVE DISORDER
     Route: 030
  3. INVEGA SUSTENNA [Suspect]
     Active Substance: PALIPERIDONE PALMITATE
  4. INVEGA SUSTENNA [Suspect]
     Active Substance: PALIPERIDONE PALMITATE
     Route: 030

REACTIONS (4)
  - Drug ineffective [Unknown]
  - Anxiety [Recovered/Resolved]
  - Wrong technique in product usage process [Unknown]
  - Depression [Recovered/Resolved]
